FAERS Safety Report 21904770 (Version 1)
Quarter: 2023Q1

REPORT INFORMATION
  Report Type: Spontaneous
  Country: US (occurrence: None)
  Receive Date: 20230124
  Receipt Date: 20230124
  Transmission Date: 20230417
  Serious: No
  Sender: FDA-Public Use
  Company Number: None

PATIENT
  Age: 38 Year
  Sex: Male
  Weight: 74.39 kg

DRUGS (2)
  1. TROSPIUM CHLORIDE [Suspect]
     Active Substance: TROSPIUM CHLORIDE
     Indication: Hypertonic bladder
     Dates: start: 20211207, end: 20220211
  2. TROSPIUM CHLORIDE [Suspect]
     Active Substance: TROSPIUM CHLORIDE
     Indication: Neuropsychiatric symptoms
     Dates: start: 20170131, end: 20220211

REACTIONS (4)
  - Confusional state [None]
  - White blood cell count increased [None]
  - Delirium [None]
  - Therapy cessation [None]

NARRATIVE: CASE EVENT DATE: 20220208
